FAERS Safety Report 12142495 (Version 1)
Quarter: 2016Q1

REPORT INFORMATION
  Report Type: Spontaneous
  Country: CA (occurrence: CA)
  Receive Date: 20160303
  Receipt Date: 20160303
  Transmission Date: 20160526
  Serious: Yes (Other)
  Sender: FDA-Public Use
  Company Number: CA-SA-2016SA036340

PATIENT
  Age: 81 Year
  Sex: Female

DRUGS (11)
  1. VITAMIN B12 [Concomitant]
     Active Substance: CYANOCOBALAMIN
  2. OLMETEC [Suspect]
     Active Substance: OLMESARTAN MEDOXOMIL
     Route: 065
  3. CYANOCOBALAMIN. [Concomitant]
     Active Substance: CYANOCOBALAMIN
  4. ERGOCALCIFEROL. [Concomitant]
     Active Substance: ERGOCALCIFEROL
  5. XARELTO [Suspect]
     Active Substance: RIVAROXABAN
     Route: 065
  6. BERIPLEX HS [Concomitant]
     Active Substance: COAGULATION FACTOR IX HUMAN\COAGULATION FACTOR VII HUMAN\COAGULATION FACTOR X HUMAN\PROTEIN C\PROTEIN S HUMAN\PROTHROMBIN
     Dosage: POWDER FOR SOLUTION
  7. DOCUSATE [Concomitant]
     Active Substance: DOCUSATE
  8. VITAMIN D [Concomitant]
     Active Substance: CHOLECALCIFEROL
  9. IRBESARTAN. [Suspect]
     Active Substance: IRBESARTAN
     Route: 065
  10. METOPROLOL. [Suspect]
     Active Substance: METOPROLOL
     Route: 065
  11. DOCUSATE SODIUM. [Concomitant]
     Active Substance: DOCUSATE SODIUM

REACTIONS (6)
  - Dizziness [Unknown]
  - Vision blurred [Unknown]
  - Presyncope [Unknown]
  - Visual impairment [Unknown]
  - Blood pressure decreased [Unknown]
  - Photopsia [Unknown]
